FAERS Safety Report 16833580 (Version 1)
Quarter: 2019Q4

REPORT INFORMATION
  Report Type: Spontaneous
  Country: US (occurrence: US)
  Receive Date: 20190920
  Receipt Date: 20190920
  Transmission Date: 20200122
  Serious: Yes (Disabling)
  Sender: FDA-Public Use
  Company Number: None

PATIENT
  Age: 78 Year
  Sex: Female
  Weight: 81 kg

DRUGS (6)
  1. LEVOTHYROXINE 100 MPG [Concomitant]
  2. VITAMIN C [Concomitant]
     Active Substance: ASCORBIC ACID
  3. VITAMIN B12 [Concomitant]
     Active Substance: CYANOCOBALAMIN
  4. SOLIFENACIN SUCCINATE. [Suspect]
     Active Substance: SOLIFENACIN SUCCINATE
     Indication: HYPERTONIC BLADDER
     Dosage: ?          QUANTITY:1 TABLET(S);?
     Route: 048
     Dates: start: 20190815, end: 20190916
  5. VITAMIN D [Concomitant]
     Active Substance: VITAMIN D NOS
  6. AMLODIPINE 2.5 [Concomitant]

REACTIONS (10)
  - Dry eye [None]
  - Cough [None]
  - Insurance issue [None]
  - Hypertonic bladder [None]
  - Fatigue [None]
  - Treatment failure [None]
  - Vision blurred [None]
  - Pulmonary congestion [None]
  - Product substitution issue [None]
  - Dry mouth [None]

NARRATIVE: CASE EVENT DATE: 20190817
